FAERS Safety Report 6445768-8 (Version None)
Quarter: 2009Q4

REPORT INFORMATION
  Report Type: 
  Country: None (occurrence: None)
  Receive Date: 20091119
  Receipt Date: 20091110
  Transmission Date: 20100525
  Serious: Yes (Other)
  Sender: FDA-Public Use
  Company Number: US-RANBAXY-2009RR-29239

PATIENT
  Age: 16 Year
  Sex: Male

DRUGS (18)
  1. FLUOXETINE [Suspect]
     Indication: ANXIETY
     Dosage: 30 MG, UNK
     Route: 048
  2. FLUOXETINE [Suspect]
     Dosage: 40 MG, UNK
  3. FLUOXETINE [Suspect]
     Dosage: 50 MG, UNK
  4. RISPERIDONE [Suspect]
     Indication: TOURETTE'S DISORDER
     Dosage: 5 MG, UNK
     Route: 048
  5. RISPERIDONE [Suspect]
     Dosage: 2 MG, UNK
  6. TETRABENAZINE [Suspect]
     Dosage: 37.5 MG, BID
  7. TETRABENAZINE [Suspect]
     Dosage: 12.5 MG, QD
  8. TETRABENAZINE [Suspect]
     Dosage: 37.5 MG, QD
  9. HALOPERIDOL [Suspect]
  10. BENZATROPINE [Suspect]
     Indication: TOURETTE'S DISORDER
  11. ZIPRASIDONE HCL [Suspect]
  12. ARIPIPRAZOLE [Suspect]
  13. TOPIRAMATE [Suspect]
     Indication: INCREASED APPETITE
     Dosage: 75 MG, QD
  14. MIDAZOLAM HYDROCHLORIDE [Suspect]
  15. ZOLPIDEM TARTRATE [Suspect]
  16. ALPRAZOLAM [Suspect]
  17. FLUPHENAZINE [Suspect]
     Dosage: 3 MG, UNK
  18. PIMOZIDE [Suspect]
     Dosage: 3 MG, QD

REACTIONS (7)
  - BLOOD PROLACTIN INCREASED [None]
  - DEPRESSION [None]
  - DRUG INTERACTION [None]
  - ELECTROCARDIOGRAM QT PROLONGED [None]
  - MUSCULOSKELETAL STIFFNESS [None]
  - SUICIDAL IDEATION [None]
  - WEIGHT INCREASED [None]
